FAERS Safety Report 25633583 (Version 2)
Quarter: 2025Q3

REPORT INFORMATION
  Report Type: Spontaneous
  Country: PK (occurrence: PK)
  Receive Date: 20250801
  Receipt Date: 20250929
  Transmission Date: 20251021
  Serious: Yes (Death)
  Sender: PFIZER
  Company Number: PK-PFIZER INC-PV202400163638

PATIENT
  Age: 54 Year
  Sex: Male

DRUGS (2)
  1. RUXIENCE [Suspect]
     Active Substance: RITUXIMAB-PVVR
     Indication: Rheumatoid arthritis
     Route: 042
  2. RUXIENCE [Suspect]
     Active Substance: RITUXIMAB-PVVR
     Route: 042
     Dates: start: 202412

REACTIONS (2)
  - Death [Fatal]
  - Off label use [Unknown]
